FAERS Safety Report 20861618 (Version 2)
Quarter: 2022Q2

REPORT INFORMATION
  Report Type: Spontaneous
  Country: RO (occurrence: RO)
  Receive Date: 20220523
  Receipt Date: 20220531
  Transmission Date: 20220721
  Serious: Yes (Other)
  Sender: FDA-Public Use
  Company Number: RO-ROCHE-3068729

PATIENT
  Age: 54 Year
  Sex: Female

DRUGS (4)
  1. RITUXIMAB [Suspect]
     Active Substance: RITUXIMAB
     Indication: Ocular lymphoma
     Route: 065
  2. POLIVY [Suspect]
     Active Substance: POLATUZUMAB VEDOTIN-PIIQ
     Indication: Ocular lymphoma
     Dosage: POLIVY [POLATUZUMAB VEDOTIN]
     Route: 065
  3. IBRUTINIB [Suspect]
     Active Substance: IBRUTINIB
     Indication: Ocular lymphoma
     Route: 065
  4. BENDAMUSTINE [Suspect]
     Active Substance: BENDAMUSTINE
     Indication: Ocular lymphoma
     Route: 065

REACTIONS (8)
  - Lymphoma [Unknown]
  - Asthenia [Unknown]
  - Neurological decompensation [Unknown]
  - Weight decreased [Unknown]
  - Fatigue [Unknown]
  - Confusional state [Unknown]
  - Disease progression [Unknown]
  - Headache [Unknown]

NARRATIVE: CASE EVENT DATE: 20200301
